FAERS Safety Report 6273034-2 (Version None)
Quarter: 2009Q3

REPORT INFORMATION
  Report Type: 
  Country: None (occurrence: None)
  Receive Date: 20090715
  Receipt Date: 20090715
  Transmission Date: 20100115
  Serious: Yes (Other)
  Sender: FDA-Public Use
  Company Number: None

PATIENT
  Age: 42 Year
  Sex: Female
  Weight: 148.3262 kg

DRUGS (11)
  1. REMICADE [Suspect]
     Indication: RHEUMATOID ARTHRITIS
     Dosage: 3 MG/KG IV
     Route: 042
  2. ARAVA [Concomitant]
  3. FOLIC ACID [Concomitant]
  4. VICODIN [Concomitant]
  5. LIDODERM [Concomitant]
  6. NEXIUM [Concomitant]
  7. ATENOLOL [Concomitant]
  8. EXFORGE [Concomitant]
  9. CLONIDINE [Concomitant]
  10. XANAX [Concomitant]
  11. OXYBUTYNIN CHLORIDE [Concomitant]

REACTIONS (3)
  - CHEST DISCOMFORT [None]
  - FATIGUE [None]
  - INFUSION RELATED REACTION [None]
